FAERS Safety Report 8512927-X (Version None)
Quarter: 2012Q3

REPORT INFORMATION
  Report Type: 
  Country: None (occurrence: None)
  Receive Date: 20120716
  Receipt Date: 20120704
  Transmission Date: 20120928
  Serious: Yes (Other)
  Sender: FDA-Public Use
  Company Number: CA-ELI_LILLY_AND_COMPANY-CA201207001599

PATIENT
  Sex: Male

DRUGS (7)
  1. HUMALOG MIX 75/25 [Suspect]
     Dosage: 60 U, BID
  2. METOPROLOL TARTRATE [Concomitant]
  3. FOSRENOL [Concomitant]
  4. FUROSEMIDE [Concomitant]
  5. CALCIUM CARBONATE [Concomitant]
  6. COLACE [Concomitant]
  7. ASPIRIN [Concomitant]

REACTIONS (2)
  - RENAL FAILURE [None]
  - BLOOD GLUCOSE INCREASED [None]
